FAERS Safety Report 4897472-5 (Version None)
Quarter: 2006Q1

REPORT INFORMATION
  Report Type: 
  Country: None (occurrence: None)
  Receive Date: 20060130
  Receipt Date: 20060130
  Transmission Date: 20060701
  Serious: Yes (Life-Threatening)
  Sender: FDA-Public Use
  Company Number: None

PATIENT
  Age: 32 Year
  Sex: Female
  Weight: 68.0396 kg

DRUGS (3)
  1. RELACORE [Suspect]
     Dosage: 2 CAPSULES T.I.D.
     Dates: start: 20060111
  2. RELACORE [Suspect]
     Dosage: 2 CAPSULES T.I.D.
     Dates: start: 20060112
  3. RELACORE [Suspect]
     Dosage: 2 CAPSULES T.I.D.
     Dates: start: 20060113

REACTIONS (3)
  - PHARYNGEAL OEDEMA [None]
  - SWELLING FACE [None]
  - URTICARIA [None]
